FAERS Safety Report 4532171-0 (Version None)
Quarter: 2004Q4

REPORT INFORMATION
  Report Type: 
  Country: None (occurrence: None)
  Receive Date: 20041217
  Receipt Date: 20041206
  Transmission Date: 20050328
  Serious: Yes (Death)
  Sender: FDA-Public Use
  Company Number: 2004106461

PATIENT
  Age: 67 Year
  Sex: Male
  Weight: 65 kg

DRUGS (5)
  1. FRAGMIN [Suspect]
     Indication: DISSEMINATED INTRAVASCULAR COAGULATION
     Dosage: INTRAVENOUS
     Route: 042
     Dates: start: 20041130, end: 20041130
  2. CEFTRIAXONE [Suspect]
     Indication: ILL-DEFINED DISORDER
     Dates: start: 20041129, end: 20041130
  3. AMINOFLUID (AMINO ACIDS NOS, ELECTROLYTES NOS, GLUCOSE) [Suspect]
     Indication: ILL-DEFINED DISORDER
     Dates: end: 20041130
  4. AMLODIPINE BESYLATE [Concomitant]
  5. ROXATIDINE ACETATAE [Concomitant]

REACTIONS (4)
  - ARRHYTHMIA [None]
  - CARDIAC ARREST [None]
  - MYOCARDIAL INFARCTION [None]
  - RESUSCITATION [None]
